FAERS Safety Report 5663508-7 (Version None)
Quarter: 2008Q1

REPORT INFORMATION
  Report Type: 
  Country: None (occurrence: None)
  Receive Date: 20080307
  Receipt Date: 20080225
  Transmission Date: 20080703
  Serious: Yes (Hospitalization, Other)
  Sender: FDA-Public Use
  Company Number: 231914J08USA

PATIENT
  Age: 33 Year
  Sex: Female

DRUGS (2)
  1. REBIF [Suspect]
     Indication: MULTIPLE SCLEROSIS
     Dosage: 44 MCG, 3 IN 1 WEEKS, SUBCUTANEOUS
     Route: 058
     Dates: start: 20050824, end: 20071201
  2. VERPAMIL (VERAPAMIL HYDROCHLORIDE) [Concomitant]

REACTIONS (3)
  - ARTERIAL THROMBOSIS [None]
  - EYE DISORDER [None]
  - EYE HAEMORRHAGE [None]
